FAERS Safety Report 24608160 (Version 1)
Quarter: 2024Q4

REPORT INFORMATION
  Report Type: Spontaneous
  Country: SG (occurrence: SG)
  Receive Date: 20241112
  Receipt Date: 20241112
  Transmission Date: 20250115
  Serious: Yes (Hospitalization, Disabling)
  Sender: NOVARTIS
  Company Number: SG-MLMSERVICE-20241025-PI240963-00336-1

PATIENT
  Age: 43 Year
  Sex: Female

DRUGS (2)
  1. ZOMETA [Suspect]
     Active Substance: ZOLEDRONIC ACID
     Indication: Breast cancer metastatic
     Dosage: 12 YEARS FROM 2012 TO THE TIME OF ADMISSION- ZOLEDRONIC ACID IS 4 MG EVERY 2 MONTHS FROM 2012 TO JAN
     Route: 065
     Dates: start: 2012, end: 202301
  2. ZOMETA [Suspect]
     Active Substance: ZOLEDRONIC ACID
     Dosage: 12 YEARS FROM 2012 TO THE TIME OF ADMISSION- ZOLEDRONIC ACID IS 4 MG EVERY 2 MONTHS FROM 2012 TO JAN
     Route: 065
     Dates: start: 202301, end: 2023

REACTIONS (3)
  - Femur fracture [Recovered/Resolved]
  - Bone disorder [Recovered/Resolved]
  - Foot fracture [Recovered/Resolved]

NARRATIVE: CASE EVENT DATE: 20190201
